FAERS Safety Report 23517603 (Version 3)
Quarter: 2024Q3

REPORT INFORMATION
  Report Type: Report from Study
  Country: CN (occurrence: CN)
  Receive Date: 20240213
  Receipt Date: 20240829
  Transmission Date: 20241017
  Serious: Yes (Hospitalization)
  Sender: PFIZER
  Company Number: CN-PFIZER INC-202400038248

PATIENT

DRUGS (3)
  1. IRINOTECAN [Suspect]
     Active Substance: IRINOTECAN
     Indication: Epithelioid sarcoma
     Dosage: 50 MG/M2/DAY FOR 5 DAYS, EVERY 3 WEEKS
     Route: 042
  2. VINCRISTINE [Suspect]
     Active Substance: VINCRISTINE
     Indication: Epithelioid sarcoma
     Dosage: 1.4 MG/M2 (MAXIMUM 2 MG) ON DAYS 1 AND 8 WITHIN A 21-DAY CYCLE
  3. CATEQUENTINIB [Suspect]
     Active Substance: CATEQUENTINIB
     Indication: Epithelioid sarcoma
     Dosage: 12 MG ONCE DAILY ON DAYS 1-14 WITHIN A 21-DAY CYCLE
     Route: 048

REACTIONS (3)
  - Loss of consciousness [Unknown]
  - Diarrhoea [Unknown]
  - Dehydration [Unknown]
